FAERS Safety Report 14601060 (Version 4)
Quarter: 2020Q1

REPORT INFORMATION
  Report Type: Report from Study
  Country: US (occurrence: US)
  Receive Date: 20180305
  Receipt Date: 20200110
  Transmission Date: 20200409
  Serious: Yes (Hospitalization)
  Sender: FDA-Public Use
  Company Number: US-ACTELION-A-NJ2018-168296

PATIENT
  Age: 81 Year
  Sex: Male

DRUGS (11)
  1. CLONIDINE. [Concomitant]
     Active Substance: CLONIDINE
  2. POTASSIUM [Concomitant]
     Active Substance: POTASSIUM
  3. WARFARIN [Concomitant]
     Active Substance: WARFARIN
  4. MULTIVITAMIN [Concomitant]
     Active Substance: VITAMINS
  5. ADCIRCA [Concomitant]
     Active Substance: TADALAFIL
  6. BUMEX [Concomitant]
     Active Substance: BUMETANIDE
  7. LOSARTAN. [Concomitant]
     Active Substance: LOSARTAN
  8. METOPROLOL. [Concomitant]
     Active Substance: METOPROLOL
  9. DIAZEPAM. [Concomitant]
     Active Substance: DIAZEPAM
  10. LOVASTATIN. [Concomitant]
     Active Substance: LOVASTATIN
  11. OPSUMIT [Suspect]
     Active Substance: MACITENTAN
     Indication: PULMONARY ARTERIAL HYPERTENSION
     Dosage: 10 MG, QD
     Route: 048

REACTIONS (12)
  - Urinary tract infection [Recovered/Resolved]
  - Headache [Not Recovered/Not Resolved]
  - Dysphagia [Not Recovered/Not Resolved]
  - Malaise [Unknown]
  - Dyspnoea [Recovered/Resolved]
  - Nasal congestion [Not Recovered/Not Resolved]
  - Dry mouth [Not Recovered/Not Resolved]
  - Dry throat [Not Recovered/Not Resolved]
  - Sepsis [Recovered/Resolved]
  - Product dose omission [Recovered/Resolved]
  - Rectal haemorrhage [Unknown]
  - Dyspnoea exertional [Unknown]

NARRATIVE: CASE EVENT DATE: 201610
